FAERS Safety Report 8256409-1 (Version None)
Quarter: 2012Q2

REPORT INFORMATION
  Report Type: 
  Country: None (occurrence: None)
  Receive Date: 20120403
  Receipt Date: 20120402
  Transmission Date: 20120825
  Serious: Yes (Other)
  Sender: FDA-Public Use
  Company Number: VE-PFIZER INC-2012079331

PATIENT
  Age: 68 Year
  Sex: Male

DRUGS (9)
  1. INSPRA [Concomitant]
     Indication: CARDIAC DISORDER
     Dosage: 25MG ONCE DAILY
     Route: 048
  2. LIPITOR [Suspect]
     Indication: ARTERIOSCLEROSIS
     Dosage: 80 MG, ONCE DAILY
     Route: 048
  3. ADALAT [Concomitant]
     Indication: HYPERTENSION
     Dosage: 60MG ONCE DAILY
     Route: 048
  4. DIGOXIN [Concomitant]
     Indication: CARDIAC DISORDER
     Dosage: 0.25MG ONCE DAILY
     Route: 048
  5. LEXOTANIL [Concomitant]
     Indication: INSOMNIA
     Dosage: 3MG ONCE DAILY
     Route: 048
  6. TRANGOREX [Concomitant]
     Indication: CARDIAC DISORDER
     Dosage: 200MG ONCE DAILY
     Route: 048
  7. IRBESARTAN [Concomitant]
     Indication: HYPERTENSION
     Dosage: 30MG ONCE DAILY
     Route: 048
  8. PLAVIX [Concomitant]
     Indication: CARDIAC DISORDER
     Dosage: 75MG ONCE DAILY
     Route: 048
  9. PANTOPRAZOLE [Concomitant]
     Indication: PROPHYLAXIS
     Dosage: 40MG ONCE DAILY
     Route: 048

REACTIONS (1)
  - ARRHYTHMIA [None]
